FAERS Safety Report 20862471 (Version 3)
Quarter: 2022Q3

REPORT INFORMATION
  Report Type: Report from Study
  Country: CO (occurrence: CO)
  Receive Date: 20220523
  Receipt Date: 20220824
  Transmission Date: 20221027
  Serious: Yes (Hospitalization, Other)
  Sender: FDA-Public Use
  Company Number: CO-002147023-NVSC2022CO111704

PATIENT

DRUGS (6)
  1. RUXOLITINIB [Suspect]
     Active Substance: RUXOLITINIB
     Indication: Myelofibrosis
     Dosage: UNK
     Route: 048
  2. RUXOLITINIB [Suspect]
     Active Substance: RUXOLITINIB
     Dosage: 10 MG, Q12H
     Route: 048
     Dates: start: 20200307
  3. RUXOLITINIB [Suspect]
     Active Substance: RUXOLITINIB
     Dosage: 15 MG
     Route: 048
  4. RUXOLITINIB [Suspect]
     Active Substance: RUXOLITINIB
     Dosage: 20 MG, Q12H
     Route: 048
  5. RUXOLITINIB [Suspect]
     Active Substance: RUXOLITINIB
     Dosage: 20 MG, BID
     Route: 065
  6. RUXOLITINIB [Suspect]
     Active Substance: RUXOLITINIB
     Dosage: 40 MG, QD
     Route: 048

REACTIONS (14)
  - Ill-defined disorder [Recovered/Resolved]
  - Ill-defined disorder [Recovering/Resolving]
  - Osteoarthritis [Unknown]
  - Arthralgia [Recovering/Resolving]
  - Pain [Recovering/Resolving]
  - Inflammation [Unknown]
  - Malaise [Unknown]
  - Bone marrow disorder [Unknown]
  - Product availability issue [Unknown]
  - Condition aggravated [Unknown]
  - Gait disturbance [Recovering/Resolving]
  - Disorientation [Unknown]
  - Joint swelling [Recovering/Resolving]
  - Inappropriate schedule of product administration [Unknown]
